FAERS Safety Report 14429021 (Version 1)
Quarter: 2018Q1

REPORT INFORMATION
  Report Type: Report from Study
  Country: US (occurrence: US)
  Receive Date: 20180123
  Receipt Date: 20180123
  Transmission Date: 20180509
  Serious: No
  Sender: FDA-Public Use
  Company Number: US-AMGEN-USASL2017172250

PATIENT
  Age: 64 Year
  Sex: Female

DRUGS (3)
  1. LOVASTATIN. [Concomitant]
     Active Substance: LOVASTATIN
  2. ZETIA [Concomitant]
     Active Substance: EZETIMIBE
  3. REPATHA [Suspect]
     Active Substance: EVOLOCUMAB
     Indication: BLOOD CHOLESTEROL INCREASED
     Dosage: 140 MG, Q2WK
     Route: 065

REACTIONS (1)
  - Liver function test increased [Unknown]

NARRATIVE: CASE EVENT DATE: 201707
